FAERS Safety Report 5737038-8 (Version None)
Quarter: 2008Q2

REPORT INFORMATION
  Report Type: 
  Country: None (occurrence: None)
  Receive Date: 20080513
  Receipt Date: 20080513
  Transmission Date: 20081010
  Serious: Yes (Hospitalization)
  Sender: FDA-Public Use
  Company Number: None

PATIENT
  Sex: Female

DRUGS (1)
  1. DIGITEK 0.25MG ACTAVIS [Suspect]
     Dosage: 1 DAILY PO
     Route: 048
     Dates: start: 20080123, end: 20080508

REACTIONS (3)
  - ATRIAL FIBRILLATION [None]
  - PHARMACEUTICAL PRODUCT COMPLAINT [None]
  - TRANSFUSION [None]
